FAERS Safety Report 15279366 (Version 6)
Quarter: 2019Q2

REPORT INFORMATION
  Report Type: Report from Study
  Country: US (occurrence: US)
  Receive Date: 20180815
  Receipt Date: 20190416
  Transmission Date: 20190711
  Serious: Yes (Hospitalization, Other)
  Sender: FDA-Public Use
  Company Number: US-BAYER-2018-147632

PATIENT
  Sex: Female

DRUGS (2)
  1. BETASERON [Suspect]
     Active Substance: INTERFERON BETA-1B
     Indication: MULTIPLE SCLEROSIS
     Dosage: 0.25 MG, QOD
     Route: 058
     Dates: start: 20150205
  2. BETASERON [Suspect]
     Active Substance: INTERFERON BETA-1B
     Indication: MULTIPLE SCLEROSIS
     Dosage: 0.25 UNK
     Route: 058
     Dates: start: 20150205

REACTIONS (11)
  - Breast mass [None]
  - Nasopharyngitis [None]
  - Amnesia [None]
  - Malaise [None]
  - Nasopharyngitis [None]
  - Gait inability [None]
  - Speech disorder [None]
  - Migraine [None]
  - Localised infection [None]
  - Product dose omission [None]
  - Breast pain [None]

NARRATIVE: CASE EVENT DATE: 2018
